FAERS Safety Report 6839312-0 (Version None)
Quarter: 2010Q3

REPORT INFORMATION
  Report Type: 
  Country: None (occurrence: None)
  Receive Date: 20100714
  Receipt Date: 20100630
  Transmission Date: 20110219
  Serious: Yes (Other)
  Sender: FDA-Public Use
  Company Number: PHHY2010AU43103

PATIENT
  Age: 64 Year
  Sex: Female

DRUGS (3)
  1. FEMARA [Suspect]
     Dosage: 2.5 MG, QD
  2. TAMOXIFEN [Suspect]
     Indication: BREAST CANCER
     Dosage: UNK
     Route: 048
  3. ARIMIDEX [Suspect]
     Dosage: UNK

REACTIONS (2)
  - DRUG INEFFECTIVE [None]
  - TRIGGER FINGER [None]
